FAERS Safety Report 4782273-9 (Version None)
Quarter: 2005Q3

REPORT INFORMATION
  Report Type: 
  Country: None (occurrence: None)
  Receive Date: 20050929
  Receipt Date: 20050915
  Transmission Date: 20060218
  Serious: Yes (Other)
  Sender: FDA-Public Use
  Company Number: US-BOEHRINGER INGELHEIM PHARMACEUTICALS, INC.-2005-BP-16355BP

PATIENT
  Sex: Female

DRUGS (4)
  1. COMBIVENT [Suspect]
     Indication: ASTHMA
     Route: 055
     Dates: start: 20030101
  2. ZYRTEC [Concomitant]
  3. SINGULAIR [Concomitant]
  4. ADDERALL 10 [Concomitant]

REACTIONS (8)
  - CONVULSION [None]
  - DYSPHEMIA [None]
  - JOINT INJURY [None]
  - LARYNGOSPASM [None]
  - LIMB DISCOMFORT [None]
  - MUSCLE SPASMS [None]
  - NAUSEA [None]
  - TREMOR [None]
